FAERS Safety Report 13390257 (Version 3)
Quarter: 2017Q2

REPORT INFORMATION
  Report Type: Spontaneous
  Country: JP (occurrence: JP)
  Receive Date: 20170331
  Receipt Date: 20170424
  Transmission Date: 20170830
  Serious: Yes (Hospitalization)
  Sender: FDA-Public Use
  Company Number: PHJP2017JP010437

PATIENT
  Age: 84 Year
  Sex: Male

DRUGS (5)
  1. RIVASTACH [Suspect]
     Active Substance: RIVASTIGMINE
     Indication: DEMENTIA ALZHEIMER^S TYPE
     Dosage: 9.5 MG, QD (10 CM2, 18 MG RIVASTIGMINE BASE)
     Route: 062
     Dates: end: 20170227
  2. ARICEPT [Concomitant]
     Active Substance: DONEPEZIL HYDROCHLORIDE
     Indication: PRODUCT USED FOR UNKNOWN INDICATION
     Dosage: 5 MG, QD
     Route: 065
     Dates: end: 20170226
  3. ARICEPT [Concomitant]
     Active Substance: DONEPEZIL HYDROCHLORIDE
     Dosage: 10 MG, QD
     Route: 065
     Dates: start: 20170227
  4. ARICEPT [Concomitant]
     Active Substance: DONEPEZIL HYDROCHLORIDE
     Dosage: 5 MG, QD
     Route: 065
  5. E KEPPRA [Suspect]
     Active Substance: LEVETIRACETAM
     Indication: PRODUCT USED FOR UNKNOWN INDICATION
     Route: 048

REACTIONS (4)
  - Communication disorder [Not Recovered/Not Resolved]
  - Somnolence [Not Recovered/Not Resolved]
  - Off label use [Unknown]
  - Drug prescribing error [Unknown]
